FAERS Safety Report 11552612 (Version 1)
Quarter: 2015Q3

REPORT INFORMATION
  Report Type: Spontaneous
  Country: US (occurrence: US)
  Receive Date: 20150925
  Receipt Date: 20150925
  Transmission Date: 20151125
  Serious: Yes (Hospitalization, Other)
  Sender: FDA-Public Use
  Company Number: US-ASTRAZENECA-2015SE90763

PATIENT
  Age: 18339 Day
  Sex: Female
  Weight: 88 kg

DRUGS (1)
  1. OLAPARIB [Suspect]
     Active Substance: OLAPARIB
     Indication: OVARIAN CANCER
     Route: 048
     Dates: start: 20150410, end: 20150521

REACTIONS (5)
  - Condition aggravated [Unknown]
  - Anaemia [Recovered/Resolved]
  - Limb discomfort [Unknown]
  - Mobility decreased [Unknown]
  - Malaise [Unknown]

NARRATIVE: CASE EVENT DATE: 20150521
